FAERS Safety Report 10579296 (Version 1)
Quarter: 2014Q4

REPORT INFORMATION
  Report Type: Spontaneous
  Country: US (occurrence: US)
  Receive Date: 20141112
  Receipt Date: 20141112
  Transmission Date: 20150529
  Serious: Yes (Other)
  Sender: FDA-Public Use
  Company Number: US-BRISTOL-MYERS SQUIBB COMPANY-21564695

PATIENT
  Age: 45 Year
  Sex: Male
  Weight: 108.84 kg

DRUGS (1)
  1. BYDUREON [Suspect]
     Active Substance: EXENATIDE
     Indication: TYPE 2 DIABETES MELLITUS
     Dosage: 2MG EVERY 9-10 DAYS?ONGOING
     Route: 058
     Dates: start: 201406

REACTIONS (3)
  - Drug administration error [Not Recovered/Not Resolved]
  - Colitis [Recovering/Resolving]
  - Incorrect product storage [Unknown]

NARRATIVE: CASE EVENT DATE: 2014
